FAERS Safety Report 9759309 (Version 1)
Quarter: 2013Q4

REPORT INFORMATION
  Report Type: Spontaneous
  Country: US (occurrence: None)
  Receive Date: 20131216
  Receipt Date: 20131216
  Transmission Date: 20140711
  Serious: Yes (Other)
  Sender: FDA-Public Use
  Company Number: 163-21880-12041231

PATIENT
  Age: 71 Year
  Sex: Female
  Weight: 57 kg

DRUGS (1)
  1. REVLIMID [Suspect]
     Dosage: 25 MG, QD 1-21, PO?25 MG, QD 1-21, PO ?10 MG, 1 IN 1 D, PO

REACTIONS (3)
  - Amyloidosis [None]
  - Rash erythematous [None]
  - Pancytopenia [None]
